FAERS Safety Report 9762699 (Version 1)
Quarter: 2013Q4

REPORT INFORMATION
  Report Type: Spontaneous
  Country: US (occurrence: US)
  Receive Date: 20131216
  Receipt Date: 20131216
  Transmission Date: 20140711
  Serious: No
  Sender: FDA-Public Use
  Company Number: US-BIOGENIDEC-2013BI104766

PATIENT
  Age: 59 Year
  Sex: Female

DRUGS (12)
  1. TECFIDERA [Suspect]
     Indication: MULTIPLE SCLEROSIS
     Route: 048
     Dates: start: 20130926
  2. TECFIDERA [Suspect]
     Indication: MULTIPLE SCLEROSIS
     Route: 048
     Dates: start: 20131003
  3. LEVOTHYROXINE [Concomitant]
  4. PROZAC [Concomitant]
  5. METOPROLOL [Concomitant]
  6. LIPITOR [Concomitant]
  7. VISTARIL [Concomitant]
  8. IPRATROPIUM BROMIDE [Concomitant]
  9. ASPIRIN [Concomitant]
  10. METFORMIN [Concomitant]
  11. AMANTIDINE [Concomitant]
  12. PRIMIDONE [Concomitant]

REACTIONS (1)
  - Adverse event [Unknown]
